FAERS Safety Report 11537012 (Version 1)
Quarter: 2015Q3

REPORT INFORMATION
  Report Type: Spontaneous
  Country: US (occurrence: US)
  Receive Date: 20150922
  Receipt Date: 20150922
  Transmission Date: 20151125
  Serious: No
  Sender: FDA-Public Use
  Company Number: US-JNJFOC-20150912868

PATIENT
  Age: 30 Year
  Sex: Female
  Weight: 95.26 kg

DRUGS (1)
  1. DURAGESIC [Suspect]
     Active Substance: FENTANYL
     Indication: SYSTEMIC LUPUS ERYTHEMATOSUS
     Route: 062
     Dates: start: 20150806

REACTIONS (4)
  - Drug dose omission [Unknown]
  - Product use issue [Unknown]
  - Hyperhidrosis [Unknown]
  - Product quality issue [Unknown]

NARRATIVE: CASE EVENT DATE: 2015
